FAERS Safety Report 11651713 (Version 4)
Quarter: 2015Q4

REPORT INFORMATION
  Report Type: Spontaneous
  Country: DK (occurrence: DK)
  Receive Date: 20151022
  Receipt Date: 20151026
  Transmission Date: 20160304
  Serious: Yes (Hospitalization)
  Sender: FDA-Public Use
  Company Number: DK-FRESENIUS KABI-FK201505172

PATIENT
  Age: 60 Year
  Sex: Female

DRUGS (13)
  1. CLOPIDOGREL [Suspect]
     Active Substance: CLOPIDOGREL BISULFATE
  2. HYDROCHLOROTHIAZIDE. [Concomitant]
     Active Substance: HYDROCHLOROTHIAZIDE
  3. CITALOPRAM [Concomitant]
     Active Substance: CITALOPRAM HYDROBROMIDE
  4. PACLITAXEL (MANUFACTURER UNKNOWN) [Suspect]
     Active Substance: PACLITAXEL
     Indication: OVARIAN CANCER
     Route: 065
  5. SIMVASTATIN. [Concomitant]
     Active Substance: SIMVASTATIN
  6. PARACETAMOL [Concomitant]
     Active Substance: ACETAMINOPHEN
  7. CARBOPLATIN. [Concomitant]
     Active Substance: CARBOPLATIN
     Indication: OVARIAN CANCER
  8. METOCLOPRAMIDE. [Concomitant]
     Active Substance: METOCLOPRAMIDE
  9. LISINOPRIL. [Concomitant]
     Active Substance: LISINOPRIL
  10. TRAMADOL. [Concomitant]
     Active Substance: TRAMADOL
  11. ONDANSETRON [Concomitant]
     Active Substance: ONDANSETRON
  12. SALICYLIC ACID. [Concomitant]
     Active Substance: SALICYLIC ACID
  13. ESOMEPRAZOLE [Concomitant]
     Active Substance: ESOMEPRAZOLE

REACTIONS (2)
  - Drug interaction [Unknown]
  - Neuropathy peripheral [Unknown]
